FAERS Safety Report 22392085 (Version 4)
Quarter: 2023Q4

REPORT INFORMATION
  Report Type: Report from Study
  Country: CA (occurrence: CA)
  Receive Date: 20230601
  Receipt Date: 20231224
  Transmission Date: 20240110
  Serious: Yes (Hospitalization)
  Sender: FDA-Public Use
  Company Number: CA-JNJFOC-20230561430

PATIENT
  Age: 69 Year
  Sex: Male
  Weight: 90.8 kg

DRUGS (2)
  1. REMICADE [Suspect]
     Active Substance: INFLIXIMAB
     Indication: Colitis ulcerative
     Dosage: THE PATIENT RECEIVED HOME INFUSION ON 25-MAY-2023.?START DATE ALSO REPORTED AS 22-FEB-2023
     Route: 041
     Dates: start: 20230124
  2. REMICADE [Suspect]
     Active Substance: INFLIXIMAB
     Route: 042
     Dates: start: 2023

REACTIONS (8)
  - Enterococcal infection [Unknown]
  - Clostridium difficile infection [Not Recovered/Not Resolved]
  - Mineral supplementation [Unknown]
  - Memory impairment [Not Recovered/Not Resolved]
  - Asthenia [Not Recovered/Not Resolved]
  - Fall [Not Recovered/Not Resolved]
  - Malaise [Not Recovered/Not Resolved]
  - Off label use [Unknown]

NARRATIVE: CASE EVENT DATE: 20230101
